FAERS Safety Report 21897005 (Version 1)
Quarter: 2023Q1

REPORT INFORMATION
  Report Type: Spontaneous
  Country: US (occurrence: US)
  Receive Date: 20230123
  Receipt Date: 20230123
  Transmission Date: 20230418
  Serious: No
  Sender: FDA-Public Use
  Company Number: US-PERRIGO-22US015882

PATIENT
  Age: 2 Year
  Sex: Female
  Weight: 11.338 kg

DRUGS (2)
  1. IBUPROFEN [Suspect]
     Active Substance: IBUPROFEN
     Indication: Product used for unknown indication
     Dosage: UNKNOWN, SINGLE HS
     Route: 048
     Dates: start: 20221201, end: 20221201
  2. IBUPROFEN [Suspect]
     Active Substance: IBUPROFEN
     Indication: Accidental exposure to product
     Dosage: APPROXIMATELY 300 MG, SINGLE IN AM
     Route: 048
     Dates: start: 20221202, end: 20221202

REACTIONS (3)
  - Accidental exposure to product by child [Recovered/Resolved]
  - Expired product administered [Recovered/Resolved]
  - Product administered to patient of inappropriate age [Recovered/Resolved]

NARRATIVE: CASE EVENT DATE: 20221201
